FAERS Safety Report 4759751-1 (Version None)
Quarter: 2005Q3

REPORT INFORMATION
  Report Type: 
  Country: None (occurrence: None)
  Receive Date: 20050826
  Receipt Date: 20050622
  Transmission Date: 20060218
  Serious: No
  Sender: FDA-Public Use
  Company Number: 215395

PATIENT
  Age: 67 Year
  Sex: Female
  Weight: 105.7 kg

DRUGS (1)
  1. RAPTIVA (EFALIZUMAB) PWDR + SOLN, 125 MG [Suspect]
     Indication: PSORIASIS
     Dosage: 70 MG, 1/WEEK, SUBCUTANEOUS
     Route: 058
     Dates: start: 20050518

REACTIONS (1)
  - CONSTIPATION [None]
